FAERS Safety Report 24524126 (Version 3)
Quarter: 2025Q2

REPORT INFORMATION
  Report Type: Spontaneous
  Country: US (occurrence: US)
  Receive Date: 20241018
  Receipt Date: 20250618
  Transmission Date: 20250717
  Serious: Yes (Hospitalization)
  Sender: SANOFI AVENTIS
  Company Number: US-SA-2024SA295875

PATIENT
  Age: 69 Year
  Sex: Female

DRUGS (1)
  1. DUPIXENT [Suspect]
     Active Substance: DUPILUMAB
     Indication: Asthma
     Dosage: 300 MG, QOW
     Route: 058

REACTIONS (11)
  - Cholelithiasis [Unknown]
  - Discomfort [Unknown]
  - Chest discomfort [Unknown]
  - Illness [Unknown]
  - Weight decreased [Unknown]
  - Thirst [Unknown]
  - Vascular injury [Unknown]
  - Injection site bruising [Unknown]
  - Injection site pain [Unknown]
  - Asthma [Unknown]
  - Dry eye [Unknown]
